FAERS Safety Report 10663119 (Version 3)
Quarter: 2015Q2

REPORT INFORMATION
  Report Type: Spontaneous
  Country: CA (occurrence: CA)
  Receive Date: 20141218
  Receipt Date: 20150508
  Transmission Date: 20150821
  Serious: Yes (Other)
  Sender: FDA-Public Use
  Company Number: CA-MERCK-1404USA012162

PATIENT
  Age: 48 Year
  Sex: Female

DRUGS (15)
  1. DOXYLAMINE SUCCINATE (+) ETAFEDRINE HYDROCHLORIDE (+) HYDROCODONE BITA [Concomitant]
     Route: 065
  2. NASONEX [Suspect]
     Active Substance: MOMETASONE FUROATE
     Dosage: UNKNOWN
     Route: 065
     Dates: start: 201403
  3. PERJETA [Suspect]
     Active Substance: PERTUZUMAB
     Indication: HER-2 POSITIVE BREAST CANCER
     Dosage: 840 MG, 1 EVERY 3 WEEKS
     Route: 042
     Dates: start: 20140305
  4. NYSTATIN. [Concomitant]
     Active Substance: NYSTATIN
     Route: 065
  5. PERJETA [Suspect]
     Active Substance: PERTUZUMAB
     Indication: BREAST CANCER METASTATIC
  6. XELODA [Suspect]
     Active Substance: CAPECITABINE
     Indication: BREAST CANCER
     Dosage: UNKNOWN
     Route: 048
     Dates: start: 201111, end: 2013
  7. HERCEPTIN [Suspect]
     Active Substance: TRASTUZUMAB
     Indication: BREAST CANCER
     Dosage: UNKNOWN
     Route: 042
     Dates: start: 2012, end: 201310
  8. ESOMEPRAZOLE MAGNESIUM. [Concomitant]
     Active Substance: ESOMEPRAZOLE MAGNESIUM
     Route: 065
  9. PERJETA [Suspect]
     Active Substance: PERTUZUMAB
     Indication: METASTASIS
  10. PREGABALIN. [Concomitant]
     Active Substance: PREGABALIN
     Route: 065
  11. AROMASIN [Concomitant]
     Active Substance: EXEMESTANE
     Route: 065
  12. DEXAMETHASONE. [Concomitant]
     Active Substance: DEXAMETHASONE
     Route: 065
  13. TIOTROPIUM BROMIDE [Concomitant]
     Active Substance: TIOTROPIUM BROMIDE
     Route: 065
  14. MEMANTINE [Concomitant]
     Active Substance: MEMANTINE
     Route: 065
  15. LAPATINIB DITOSYLATE [Concomitant]
     Active Substance: LAPATINIB DITOSYLATE
     Route: 065

REACTIONS (14)
  - Decreased appetite [Unknown]
  - Dyspnoea [Unknown]
  - Neutrophil count increased [Unknown]
  - Cough [Unknown]
  - Haematocrit increased [Unknown]
  - Lymphocyte count decreased [Unknown]
  - Epistaxis [Unknown]
  - Nausea [Unknown]
  - Oral herpes [Unknown]
  - Diarrhoea [Unknown]
  - Urticaria [Unknown]
  - Disease progression [Unknown]
  - Red blood cell count increased [Unknown]
  - Drug ineffective [Unknown]

NARRATIVE: CASE EVENT DATE: 201403
